FAERS Safety Report 10088928 (Version 1)
Quarter: 2014Q2

REPORT INFORMATION
  Report Type: Spontaneous
  Country: ES (occurrence: ES)
  Receive Date: 20140421
  Receipt Date: 20140421
  Transmission Date: 20141212
  Serious: Yes (Other)
  Sender: FDA-Public Use
  Company Number: ES-009507513-1404ESP008424

PATIENT
  Age: 27 Year
  Sex: Female

DRUGS (3)
  1. NUVARING [Suspect]
     Dosage: ETONOGESTREL 0.120MG / ETHYNILESTRADIOL 0.015MG
     Route: 067
     Dates: start: 201312, end: 20140106
  2. NUVARING [Suspect]
     Dosage: ETONOGESTREL 0.120MG / ETHYNILESTRADIOL 0.015MG
     Route: 067
     Dates: start: 201207
  3. NUVARING [Suspect]
     Dosage: ETONOGESTREL 0.120MG / ETHYNILESTRADIOL 0.015MG
     Route: 067
     Dates: start: 201311, end: 201312

REACTIONS (4)
  - Abortion induced [Recovered/Resolved]
  - Unintended pregnancy [Recovered/Resolved]
  - Haemorrhage [Unknown]
  - Incorrect product storage [Unknown]
